FAERS Safety Report 6131967-1 (Version None)
Quarter: 2009Q1

REPORT INFORMATION
  Report Type: 
  Country: None (occurrence: None)
  Receive Date: 20090325
  Receipt Date: 20090317
  Transmission Date: 20090719
  Serious: Yes (Other)
  Sender: FDA-Public Use
  Company Number: GB-ABBOTT-09P-167-0562977-00

PATIENT
  Sex: Female

DRUGS (2)
  1. EPILIM CHRONO TABLETS [Suspect]
     Indication: DRUG USE FOR UNKNOWN INDICATION
     Route: 048
     Dates: start: 20090101
  2. EPILIM CHRONO TABLETS [Suspect]
     Dates: start: 20070101, end: 20090101

REACTIONS (3)
  - CONVULSION [None]
  - DRUG INEFFECTIVE [None]
  - MEDICATION RESIDUE [None]
